FAERS Safety Report 6449027-9 (Version None)
Quarter: 2009Q4

REPORT INFORMATION
  Report Type: 
  Country: None (occurrence: None)
  Receive Date: 20091120
  Receipt Date: 20091112
  Transmission Date: 20100525
  Serious: Yes (Congenital Anomaly)
  Sender: FDA-Public Use
  Company Number: B0603649A

PATIENT
  Sex: Male
  Weight: 2.38 kg

DRUGS (4)
  1. PROCYCLIDINE HYDROCHLORIDE [Suspect]
     Dosage: 10MG PER DAY
  2. QUETIAPINE [Suspect]
     Dosage: 600MG PER DAY
  3. VENLAFAXINE [Suspect]
     Dosage: 225MG PER DAY
  4. LEVOTHYROXINE SODIUM [Concomitant]

REACTIONS (3)
  - HYPOSPADIAS [None]
  - MULTIPLE CONGENITAL ABNORMALITIES [None]
  - TALIPES [None]
